FAERS Safety Report 7670820-9 (Version None)
Quarter: 2011Q3

REPORT INFORMATION
  Report Type: 
  Country: None (occurrence: None)
  Receive Date: 20110803
  Receipt Date: 20110719
  Transmission Date: 20111222
  Serious: Yes (Death, Hospitalization)
  Sender: FDA-Public Use
  Company Number: 2011MA009042

PATIENT
  Age: 23 Year
  Sex: Male

DRUGS (1)
  1. ACYCLOVIR [Suspect]
     Indication: HERPES ZOSTER
     Dosage: IV
     Route: 042

REACTIONS (8)
  - EPILEPSY [None]
  - ENCEPHALITIS [None]
  - HERPES ZOSTER [None]
  - DRUG RESISTANCE [None]
  - OPTIC NEURITIS [None]
  - GRAFT VERSUS HOST DISEASE [None]
  - RESPIRATORY FAILURE [None]
  - MYELITIS TRANSVERSE [None]
